FAERS Safety Report 21347870 (Version 2)
Quarter: 2022Q4

REPORT INFORMATION
  Report Type: Report from Study
  Country: US (occurrence: US)
  Receive Date: 20220919
  Receipt Date: 20221007
  Transmission Date: 20230112
  Serious: Yes (Other)
  Sender: FDA-Public Use
  Company Number: US-BRISTOL-MYERS SQUIBB COMPANY-2022-103544

PATIENT
  Age: 41 Year
  Sex: Female
  Weight: 80.74 kg

DRUGS (1)
  1. ORENCIA [Suspect]
     Active Substance: ABATACEPT
     Indication: Juvenile idiopathic arthritis
     Dosage: DOSE : 6 125MG CLICKJECT
     Route: 058

REACTIONS (2)
  - Device malfunction [Unknown]
  - Nausea [Unknown]

NARRATIVE: CASE EVENT DATE: 20220907
